FAERS Safety Report 8326545-X (Version None)
Quarter: 2012Q2

REPORT INFORMATION
  Report Type: 
  Country: None (occurrence: None)
  Receive Date: 20120501
  Receipt Date: 20120416
  Transmission Date: 20120825
  Serious: No
  Sender: FDA-Public Use
  Company Number: US-ENDO PHARMACEUTICALS INC.-MSER20120036

PATIENT
  Sex: Male
  Weight: 85.806 kg

DRUGS (2)
  1. OXYCODONE/ACETAMINOPHEN [Suspect]
     Indication: NEURALGIA
     Dosage: UNK
     Route: 048
  2. MORPHINE SULFATE [Suspect]
     Indication: NEURALGIA
     Dosage: UNK
     Route: 048

REACTIONS (1)
  - DRUG INEFFECTIVE [None]
